FAERS Safety Report 8552113 (Version 5)
Quarter: 2013Q1

REPORT INFORMATION
  Report Type: Spontaneous
  Country: US (occurrence: US)
  Receive Date: 20120508
  Receipt Date: 20130301
  Transmission Date: 20140127
  Serious: Yes (Other)
  Sender: FDA-Public Use
  Company Number: US-ASTRAZENECA-2010SE43137

PATIENT
  Age: 83 Year
  Sex: Female
  Weight: 76.2 kg

DRUGS (6)
  1. ARIMIDEX [Suspect]
     Route: 048
  2. SYMBICORT PMDI [Suspect]
     Dosage: UNKNOWN
     Route: 055
  3. CRESTOR [Suspect]
     Route: 048
  4. TAMOXIFEN [Suspect]
     Route: 048
  5. BROVANA [Concomitant]
  6. NEBULIZER [Concomitant]

REACTIONS (11)
  - Breast cancer recurrent [Unknown]
  - Neoplasm malignant [Unknown]
  - Breast cancer female [Unknown]
  - Lung neoplasm malignant [Unknown]
  - Chronic obstructive pulmonary disease [Unknown]
  - Lung disorder [Unknown]
  - Malaise [Unknown]
  - Bronchitis chronic [Unknown]
  - Pneumonia [Unknown]
  - Lung infection [Unknown]
  - Hepatomegaly [Unknown]
